FAERS Safety Report 9422058 (Version 1)
Quarter: 2013Q3

REPORT INFORMATION
  Report Type: Spontaneous
  Country: GB (occurrence: GB)
  Receive Date: 20130726
  Receipt Date: 20130726
  Transmission Date: 20140515
  Serious: Yes (Disabling)
  Sender: FDA-Public Use
  Company Number: GB-JNJFOC-20130710895

PATIENT
  Age: 76 Year
  Sex: Female
  Weight: 82 kg

DRUGS (9)
  1. XARELTO [Suspect]
     Indication: PRODUCT USED FOR UNKNOWN INDICATION
     Route: 048
     Dates: start: 20130613
  2. CODEINE PHOSPHATE [Concomitant]
     Route: 065
     Dates: start: 20130325, end: 20130704
  3. WARFARIN SODIUM [Concomitant]
     Dates: start: 20130115
  4. LEVOTHYROXINE [Concomitant]
     Dates: start: 20130325
  5. MAXITROL [Concomitant]
     Dates: start: 20130404, end: 20130414
  6. OMEPRAZOLE [Concomitant]
     Dates: start: 20130422, end: 20130704
  7. CALCICHEW D3 [Concomitant]
     Route: 065
     Dates: start: 20130325
  8. BENDROFLUMETHIAZIDE [Concomitant]
     Route: 065
     Dates: start: 20130325, end: 20130704
  9. DILTIAZEM [Concomitant]
     Dates: start: 20130325, end: 20130704

REACTIONS (1)
  - Diarrhoea [Recovering/Resolving]
